FAERS Safety Report 12623947 (Version 11)
Quarter: 2018Q3

REPORT INFORMATION
  Report Type: Report from Study
  Country: None (occurrence: US)
  Receive Date: 20160804
  Receipt Date: 20180816
  Transmission Date: 20181010
  Serious: Yes (Hospitalization, Other)
  Sender: FDA-Public Use
  Company Number: US-ABBVIE-16K-163-1688455-00

PATIENT
  Sex: Male
  Weight: 59.02 kg

DRUGS (5)
  1. HUMIRA [Suspect]
     Active Substance: ADALIMUMAB
     Indication: CROHN^S DISEASE
     Route: 058
     Dates: start: 2008, end: 2015
  2. HUMIRA [Suspect]
     Active Substance: ADALIMUMAB
     Route: 058
     Dates: start: 201604
  3. IMURAN [Concomitant]
     Active Substance: AZATHIOPRINE
     Indication: PRODUCT USED FOR UNKNOWN INDICATION
     Dates: start: 2016
  4. MERCAPTOPURINE. [Concomitant]
     Active Substance: MERCAPTOPURINE
     Indication: PRODUCT USED FOR UNKNOWN INDICATION
  5. HUMIRA [Suspect]
     Active Substance: ADALIMUMAB
     Route: 058
     Dates: start: 2015, end: 201603

REACTIONS (15)
  - Rectal stenosis [Recovered/Resolved]
  - Weight decreased [Not Recovered/Not Resolved]
  - Gastrointestinal stoma complication [Unknown]
  - Hiatus hernia [Unknown]
  - Hepatic enzyme increased [Not Recovered/Not Resolved]
  - Intestinal stenosis [Recovered/Resolved]
  - Postoperative thrombosis [Recovered/Resolved]
  - Intestinal scarring [Recovering/Resolving]
  - Intestinal stenosis [Recovering/Resolving]
  - Temperature intolerance [Unknown]
  - Drug ineffective [Unknown]
  - Stoma site irritation [Not Recovered/Not Resolved]
  - Drug level decreased [Recovered/Resolved]
  - Fungal infection [Unknown]
  - Crohn^s disease [Recovering/Resolving]

NARRATIVE: CASE EVENT DATE: 2011
